FAERS Safety Report 25399068 (Version 1)
Quarter: 2025Q2

REPORT INFORMATION
  Report Type: Spontaneous
  Country: CN (occurrence: CN)
  Receive Date: 20250605
  Receipt Date: 20250605
  Transmission Date: 20250716
  Serious: Yes (Hospitalization)
  Sender: NOVO NORDISK
  Company Number: CN-NOVOPROD-1442776

PATIENT
  Age: 76 Year
  Sex: Female
  Weight: 55 kg

DRUGS (3)
  1. INSULIN ASPART [Suspect]
     Active Substance: INSULIN ASPART
     Indication: Type 2 diabetes mellitus
     Dosage: 22 IU, QD
  2. INSULIN ASPART [Suspect]
     Active Substance: INSULIN ASPART
     Dosage: 28 IU, QD (12U IN THE MORNING AND 10U IN THE EVENING AND AN ADDITIONAL 6U)
     Dates: start: 20250524, end: 20250525
  3. DAPAGLIFLOZIN [Concomitant]
     Active Substance: DAPAGLIFLOZIN

REACTIONS (5)
  - Pneumonitis [Recovering/Resolving]
  - Renal impairment [Recovering/Resolving]
  - Gastrointestinal disorder [Recovering/Resolving]
  - Hypoglycaemia [Recovering/Resolving]
  - Product storage error [Unknown]
